FAERS Safety Report 4599384-3 (Version None)
Quarter: 2005Q1

REPORT INFORMATION
  Report Type: 
  Country: None (occurrence: None)
  Receive Date: 20050302
  Receipt Date: 20050302
  Transmission Date: 20050727
  Serious: Yes (Other)
  Sender: FDA-Public Use
  Company Number: None

PATIENT
  Age: 24 Year
  Sex: Female
  Weight: 102.0593 kg

DRUGS (1)
  1. CELEBREX [Suspect]
     Indication: HEADACHE
     Dosage: 200 MG PO BID
     Route: 048
     Dates: start: 20050228, end: 20050301

REACTIONS (3)
  - DISEASE RECURRENCE [None]
  - PARAESTHESIA [None]
  - THERAPEUTIC RESPONSE UNEXPECTED [None]
